FAERS Safety Report 8292796-6 (Version None)
Quarter: 2012Q2

REPORT INFORMATION
  Report Type: 
  Country: None (occurrence: None)
  Receive Date: 20120417
  Receipt Date: 20120220
  Transmission Date: 20120825
  Serious: No
  Sender: FDA-Public Use
  Company Number: US-ASTRAZENECA-2012SE10218

PATIENT
  Age: 46 Year
  Sex: Female

DRUGS (2)
  1. NEXIUM [Suspect]
     Route: 048
  2. NEXIUM [Suspect]
     Route: 048

REACTIONS (6)
  - BACK DISORDER [None]
  - NAUSEA [None]
  - CONTUSION [None]
  - DYSPEPSIA [None]
  - ARTHROPATHY [None]
  - DRUG EFFECT DECREASED [None]
